FAERS Safety Report 4301558-3 (Version None)
Quarter: 2004Q1

REPORT INFORMATION
  Report Type: 
  Country: None (occurrence: None)
  Receive Date: 20040219
  Receipt Date: 20030924
  Transmission Date: 20041129
  Serious: No
  Sender: FDA-Public Use
  Company Number: 03091192

PATIENT
  Sex: Female

DRUGS (2)
  1. CLOTRIMAZOLE [Suspect]
     Indication: CANDIDIASIS
     Dosage: 1APLF, HS, OTHER
     Route: 050
     Dates: start: 20030915
  2. CLOTRIMAZOLE [Suspect]
     Indication: VULVOVAGINITIS
     Dosage: 1APLF, HS, OTHER
     Route: 050
     Dates: start: 20030915

REACTIONS (1)
  - DRUG INEFFECTIVE [None]
